FAERS Safety Report 8519465-9 (Version None)
Quarter: 2012Q3

REPORT INFORMATION
  Report Type: 
  Country: None (occurrence: None)
  Receive Date: 20120718
  Receipt Date: 20120712
  Transmission Date: 20120928
  Serious: Yes (Hospitalization)
  Sender: FDA-Public Use
  Company Number: BR-PFIZER INC-2012103805

PATIENT
  Age: 42 Year
  Sex: Female

DRUGS (2)
  1. LYRICA [Suspect]
     Dosage: UNK, EVERY 12 HOURS
     Route: 048
     Dates: start: 20120101
  2. LYRICA [Suspect]
     Indication: BACK PAIN
     Dosage: 450 MG, DAILY (150MG  IN THE MORNING AND 2X150MG CAPSULES AT NIGHT)
     Route: 048
     Dates: start: 20110101

REACTIONS (2)
  - SPINAL CORD COMPRESSION [None]
  - SPINAL PAIN [None]
